FAERS Safety Report 11022208 (Version 4)
Quarter: 2015Q3

REPORT INFORMATION
  Report Type: Spontaneous
  Country: US (occurrence: US)
  Receive Date: 20150413
  Receipt Date: 20150805
  Transmission Date: 20151125
  Serious: Yes (Hospitalization, Disabling, Other)
  Sender: FDA-Public Use
  Company Number: US-ENDO PHARMACEUTICALS INC.-201504023

PATIENT
  Age: 68 Year
  Sex: Male
  Weight: 97.61 kg

DRUGS (1)
  1. TESTIM [Suspect]
     Active Substance: TESTOSTERONE
     Indication: ANDROGEN REPLACEMENT THERAPY
     Dosage: 11-JUN-2007 USED ^DAILY^?11-JUL-2007 USED DAILY, ^DOSE DOUBLED^
     Route: 062
     Dates: start: 20070611, end: 20070815

REACTIONS (10)
  - Cardiac arrest [Not Recovered/Not Resolved]
  - Chest pain [Unknown]
  - Cardiovascular disorder [Not Recovered/Not Resolved]
  - Thrombosis [Not Recovered/Not Resolved]
  - Cardiac disorder [Not Recovered/Not Resolved]
  - Urogenital haemorrhage [Not Recovered/Not Resolved]
  - Acute myocardial infarction [Not Recovered/Not Resolved]
  - Sleep apnoea syndrome [Not Recovered/Not Resolved]
  - Palpitations [Unknown]
  - Depression [Not Recovered/Not Resolved]

NARRATIVE: CASE EVENT DATE: 20070801
